FAERS Safety Report 17400187 (Version 1)
Quarter: 2020Q1

REPORT INFORMATION
  Report Type: Report from Study
  Country: JP (occurrence: JP)
  Receive Date: 20200211
  Receipt Date: 20200211
  Transmission Date: 20200409
  Serious: Yes (Death, Hospitalization)
  Sender: FDA-Public Use
  Company Number: JP-ACTELION-A-CH2019-194390

PATIENT
  Age: 70 Year
  Sex: Female
  Weight: 59.5 kg

DRUGS (11)
  1. HEPAACT [Concomitant]
  2. FEBURIC [Concomitant]
     Active Substance: FEBUXOSTAT
  3. NEXIUM [Concomitant]
     Active Substance: ESOMEPRAZOLE MAGNESIUM
  4. SILDENAFIL. [Concomitant]
     Active Substance: SILDENAFIL
     Dosage: 60 MG, QD
  5. UPTRAVI [Concomitant]
     Active Substance: SELEXIPAG
  6. REVATIO [Concomitant]
     Active Substance: SILDENAFIL CITRATE
  7. SAMSCA [Concomitant]
     Active Substance: TOLVAPTAN
  8. AZOSEMIDE [Concomitant]
     Active Substance: AZOSEMIDE
  9. SPIRONOLACTONE. [Concomitant]
     Active Substance: SPIRONOLACTONE
  10. FERROUS CITRATE NA [Concomitant]
     Active Substance: SODIUM FERROUS CITRATE
  11. OPSUMIT [Suspect]
     Active Substance: MACITENTAN
     Indication: PORTOPULMONARY HYPERTENSION
     Dosage: 10 MG, QD
     Route: 048
     Dates: start: 20180606, end: 20180628

REACTIONS (11)
  - Abdominal distension [Fatal]
  - Concomitant disease progression [Fatal]
  - Weight increased [Fatal]
  - Portal vein stenosis [Not Recovered/Not Resolved]
  - Hepatocellular carcinoma [Fatal]
  - Dyspnoea [Fatal]
  - Portal shunt [Fatal]
  - Cardiac output increased [Fatal]
  - Ascites [Fatal]
  - Hypoxia [Fatal]
  - Hepatopulmonary syndrome [Fatal]

NARRATIVE: CASE EVENT DATE: 20180612
